FAERS Safety Report 11002712 (Version 2)
Quarter: 2015Q2

REPORT INFORMATION
  Report Type: Spontaneous
  Country: JP (occurrence: JP)
  Receive Date: 20150408
  Receipt Date: 20150419
  Transmission Date: 20150821
  Serious: Yes (Hospitalization, Disabling)
  Sender: FDA-Public Use
  Company Number: JP-B.I. PHARMACEUTICALS,INC./RIDGEFIELD-2015-BI-18853NB

PATIENT
  Age: 82 Year
  Sex: Female

DRUGS (16)
  1. ALFAROL [Concomitant]
     Active Substance: ALFACALCIDOL
     Indication: ERYTHEMA NODOSUM
     Dosage: 2 ANZ
     Route: 065
     Dates: start: 20150228
  2. PREDONINE [Concomitant]
     Active Substance: PREDNISOLONE\PREDNISOLONE ACETATE\PREDNISOLONE SODIUM SUCCINATE
     Indication: SERONEGATIVE ARTHRITIS
     Dosage: 10 MG
     Route: 065
     Dates: start: 20150220
  3. AMLODIN [Concomitant]
     Active Substance: AMLODIPINE BESYLATE
     Indication: SERONEGATIVE ARTHRITIS
     Route: 065
     Dates: start: 20150228
  4. ROZEREM [Concomitant]
     Active Substance: RAMELTEON
     Indication: SERONEGATIVE ARTHRITIS
     Dosage: 1 ANZ
     Route: 065
     Dates: start: 20150228
  5. FERROUS CITRATE NA [Concomitant]
     Indication: SERONEGATIVE ARTHRITIS
     Dosage: 50 MG
     Route: 065
     Dates: start: 20150306
  6. VASOLAN [Concomitant]
     Active Substance: VERAPAMIL HYDROCHLORIDE
     Indication: PRODUCT USED FOR UNKNOWN INDICATION
     Route: 065
     Dates: start: 20150206
  7. LOPRESSOR [Concomitant]
     Active Substance: METOPROLOL TARTRATE
     Indication: ATRIAL FIBRILLATION
     Route: 065
     Dates: start: 20150206, end: 20150220
  8. BISONO [Concomitant]
     Indication: ATRIAL FIBRILLATION
     Route: 065
     Dates: start: 20150220
  9. LOXOPROFEN NA [Concomitant]
     Active Substance: LOXOPROFEN SODIUM
     Indication: SERONEGATIVE ARTHRITIS
     Route: 065
     Dates: start: 20150228
  10. REBAMIPIDE [Concomitant]
     Active Substance: REBAMIPIDE
     Indication: SERONEGATIVE ARTHRITIS
     Route: 065
     Dates: start: 20150228
  11. ASPENON [Concomitant]
     Active Substance: APRINDINE HYDROCHLORIDE
     Indication: ATRIAL FIBRILLATION
     Route: 065
     Dates: start: 20150220
  12. FAMOTIDINE. [Concomitant]
     Active Substance: FAMOTIDINE
     Indication: ERYTHEMA NODOSUM
     Dosage: 20 MG
     Route: 065
     Dates: start: 20150228
  13. TRANSAMIN [Concomitant]
     Active Substance: TRANEXAMIC ACID
     Indication: ERYTHEMA NODOSUM
     Dosage: 500 MG
     Route: 065
     Dates: start: 20150228
  14. CLINORIL [Concomitant]
     Active Substance: SULINDAC
     Indication: ERYTHEMA NODOSUM
     Dosage: 2 ANZ
     Route: 065
     Dates: start: 20150228
  15. PRAZAXA [Suspect]
     Active Substance: DABIGATRAN ETEXILATE MESYLATE
     Indication: ATRIAL FIBRILLATION
     Dosage: 220 MG
     Route: 048
     Dates: start: 20150206
  16. LECTISOL [Concomitant]
     Active Substance: DAPSONE
     Indication: ERYTHEMA NODOSUM
     Dosage: 2 ANZ
     Route: 065
     Dates: start: 20150228

REACTIONS (7)
  - Atrial fibrillation [Unknown]
  - Neurologic neglect syndrome [Unknown]
  - Headache [Unknown]
  - Bradyphrenia [Unknown]
  - Tachycardia [Not Recovered/Not Resolved]
  - Pain [Unknown]
  - Embolic stroke [Recovered/Resolved with Sequelae]

NARRATIVE: CASE EVENT DATE: 20150218
